FAERS Safety Report 4725586-9 (Version None)
Quarter: 2005Q3

REPORT INFORMATION
  Report Type: 
  Country: None (occurrence: None)
  Receive Date: 20050722
  Receipt Date: 20050722
  Transmission Date: 20060218
  Serious: Yes (Hospitalization)
  Sender: FDA-Public Use
  Company Number: None

PATIENT
  Age: 29 Year
  Sex: Female

DRUGS (1)
  1. VICODIN [Suspect]

REACTIONS (4)
  - INFECTION [None]
  - NAUSEA [None]
  - PAIN [None]
  - VOMITING [None]
